FAERS Safety Report 8634036 (Version 3)
Quarter: 2014Q1

REPORT INFORMATION
  Report Type: Spontaneous
  Country: US (occurrence: US)
  Receive Date: 20120626
  Receipt Date: 20140108
  Transmission Date: 20141002
  Serious: Yes (Other)
  Sender: FDA-Public Use
  Company Number: US-ASTRAZENECA-2012SE35923

PATIENT
  Age: 24460 Day
  Sex: Female

DRUGS (24)
  1. NEXIUM [Suspect]
     Indication: GASTROOESOPHAGEAL REFLUX DISEASE
     Route: 048
     Dates: start: 2002
  2. NEXIUM [Suspect]
     Indication: GASTROOESOPHAGEAL REFLUX DISEASE
     Route: 048
     Dates: start: 20060123
  3. PROAIR HFA [Concomitant]
     Dosage: 90 MCG/ACTUATION
  4. XANAX [Concomitant]
     Route: 048
  5. ECOTRIN [Concomitant]
     Route: 048
  6. SOMA [Concomitant]
     Route: 048
  7. CELEBREX [Concomitant]
     Route: 048
  8. CELEXA [Concomitant]
     Route: 048
  9. VALIUM [Concomitant]
     Route: 048
  10. CARDIZEM CD [Concomitant]
     Route: 048
  11. LEXAPRO [Concomitant]
     Route: 048
  12. ZETIA [Concomitant]
     Route: 048
  13. ALLEGRA [Concomitant]
     Route: 048
  14. LASIX [Concomitant]
     Route: 048
  15. AMARYL [Concomitant]
     Route: 048
  16. LORTAB [Concomitant]
     Dosage: 10-500 MG, TAKE 1-2 TABLET EVERU FOUR HOURS AS NEEDED
     Route: 048
  17. SYNTHROID [Concomitant]
     Route: 048
  18. SKELAXIN [Concomitant]
     Route: 048
  19. ACTOS [Concomitant]
     Route: 048
  20. PRAVACHOL [Concomitant]
     Route: 048
  21. DIOVAN HCT [Concomitant]
     Dosage: 80-12.5 MG, TAKE 1 TABLET EVERY DAY
     Route: 048
  22. ROLAIDS [Concomitant]
     Dates: start: 2002
  23. MILK OF MAGNESIA [Concomitant]
     Dosage: ONCE A WEEK
     Dates: start: 2000
  24. EVISTA [Concomitant]
     Route: 048

REACTIONS (9)
  - Osteomyelitis [Unknown]
  - Osteoporosis [Unknown]
  - Wrist fracture [Unknown]
  - Ankle fracture [Unknown]
  - Back pain [Unknown]
  - Carpal tunnel syndrome [Unknown]
  - Fall [Unknown]
  - Osteoarthritis [Unknown]
  - Pneumonia [Unknown]
